FAERS Safety Report 12157742 (Version 1)
Quarter: 2016Q1

REPORT INFORMATION
  Report Type: Spontaneous
  Country: US (occurrence: US)
  Receive Date: 20160308
  Receipt Date: 20160308
  Transmission Date: 20160526
  Serious: No
  Sender: FDA-Public Use
  Company Number: US-JNJFOC-20141105462

PATIENT
  Age: 72 Year
  Sex: Male

DRUGS (9)
  1. LISINOPRIL. [Concomitant]
     Active Substance: LISINOPRIL
  2. ASPIRIN. [Concomitant]
     Active Substance: ASPIRIN
  3. IMBRUVICA [Suspect]
     Active Substance: IBRUTINIB
     Indication: CHRONIC LYMPHOCYTIC LEUKAEMIA
     Route: 048
     Dates: start: 20141015
  4. NAPROXEN. [Concomitant]
     Active Substance: NAPROXEN
  5. PRAVASTATIN [Concomitant]
     Active Substance: PRAVASTATIN\PRAVASTATIN SODIUM
  6. ATIVAN [Concomitant]
     Active Substance: LORAZEPAM
  7. OXYBUTYNIN [Concomitant]
     Active Substance: OXYBUTYNIN
  8. CHONDROITIN [Concomitant]
     Active Substance: CHONDROITIN
  9. GLUCOSAMINE + CHONDROITIN SULFATE [Concomitant]

REACTIONS (2)
  - Dry mouth [Not Recovered/Not Resolved]
  - Dysgeusia [Not Recovered/Not Resolved]

NARRATIVE: CASE EVENT DATE: 201410
